FAERS Safety Report 8581349 (Version 3)
Quarter: 2012Q4

REPORT INFORMATION
  Report Type: 
  Country: SV (occurrence: SV)
  Receive Date: 20120525
  Receipt Date: 20120920
  Transmission Date: 20130627
  Serious: Yes (Hospitalization, Other)
  Sender: FDA-Public Use
  Company Number: SV-ELI_LILLY_AND_COMPANY-SV201205007046

PATIENT
  Age: 67 Year
  Sex: Female

DRUGS (3)
  1. HUMALOG LISPRO [Suspect]
     Indication: TYPE 2 DIABETES MELLITUS
     Dosage: UNK
     Dates: start: 201111
  2. HUMALOG 25% LISPRO, 75% NPL [Suspect]
     Dosage: UNK
  3. LANTUS [Concomitant]
     Indication: TYPE 2 DIABETES MELLITUS
     Dosage: UNK
     Dates: start: 201111

REACTIONS (7)
  - Skin ulcer [Unknown]
  - Infected skin ulcer [Unknown]
  - Hypoglycaemia [Recovered/Resolved]
  - Creatinine renal clearance decreased [Unknown]
  - Wrong drug administered [Unknown]
  - Intentional drug misuse [Unknown]
  - Urinary tract infection [Unknown]
